FAERS Safety Report 8398056 (Version 2)
Quarter: 2013Q2

REPORT INFORMATION
  Report Type: Report from Study
  Country: PL (occurrence: PL)
  Receive Date: 20120209
  Receipt Date: 20130613
  Transmission Date: 20140414
  Serious: Yes (Hospitalization)
  Sender: FDA-Public Use
  Company Number: PL-UCBSA-050492

PATIENT
  Age: 36 Year
  Sex: Male

DRUGS (2)
  1. CERTOLIZUMAB PEGOL [Suspect]
     Indication: SPONDYLITIS
     Dosage: NO OF DOSES RECEIVED-36
     Route: 058
     Dates: start: 20101104, end: 20111005
  2. NO CONCOMITANT MEDICATION [Concomitant]

REACTIONS (1)
  - Tuberculosis [Recovered/Resolved]
